FAERS Safety Report 19134790 (Version 1)
Quarter: 2021Q2

REPORT INFORMATION
  Report Type: Spontaneous
  Country: US (occurrence: US)
  Receive Date: 20210414
  Receipt Date: 20210414
  Transmission Date: 20210717
  Serious: No
  Sender: FDA-Public Use
  Company Number: US-SA-2021SA120647

PATIENT
  Age: 39 Year
  Sex: Male

DRUGS (3)
  1. LUMIZYME [Suspect]
     Active Substance: ALGLUCOSIDASE ALFA
     Dosage: 1700 MG, QOW
     Dates: start: 20210205, end: 20210219
  2. LUMIZYME [Suspect]
     Active Substance: ALGLUCOSIDASE ALFA
     Dosage: 1700 MG, QOW
     Dates: start: 20201219, end: 2021
  3. LUMIZYME [Suspect]
     Active Substance: ALGLUCOSIDASE ALFA
     Dosage: 1700 MG, QOW
     Dates: start: 20210330

REACTIONS (5)
  - Poor venous access [Unknown]
  - Incorrect dose administered [Unknown]
  - Dehydration [Recovered/Resolved]
  - Product preparation issue [Unknown]
  - Product storage error [Unknown]

NARRATIVE: CASE EVENT DATE: 20201219
